FAERS Safety Report 14146497 (Version 2)
Quarter: 2017Q4

REPORT INFORMATION
  Report Type: Spontaneous
  Country: US (occurrence: US)
  Receive Date: 20171031
  Receipt Date: 20171116
  Transmission Date: 20180321
  Serious: Yes (Other)
  Sender: FDA-Public Use
  Company Number: US-UNITED THERAPEUTICS-UNT-2017-015385

PATIENT
  Age: 17 Year
  Sex: Female
  Weight: 52.61 kg

DRUGS (2)
  1. ADCIRCA [Concomitant]
     Active Substance: TADALAFIL
     Indication: PRODUCT USED FOR UNKNOWN INDICATION
     Route: 065
  2. REMODULIN [Suspect]
     Active Substance: TREPROSTINIL
     Indication: PULMONARY ARTERIAL HYPERTENSION
     Dosage: 0.103 ?G/KG, CONTINUING
     Route: 041
     Dates: start: 20130702

REACTIONS (1)
  - Vestibular disorder [Not Recovered/Not Resolved]

NARRATIVE: CASE EVENT DATE: 20171012
